FAERS Safety Report 19850337 (Version 3)
Quarter: 2021Q4

REPORT INFORMATION
  Report Type: Report from Study
  Country: US (occurrence: US)
  Receive Date: 20210917
  Receipt Date: 20211020
  Transmission Date: 20220304
  Serious: Yes (Hospitalization)
  Sender: FDA-Public Use
  Company Number: US-NOVARTISPH-NVSC2021US210731

PATIENT
  Sex: Female
  Weight: 83.01 kg

DRUGS (6)
  1. TREPROSTINIL [Suspect]
     Active Substance: TREPROSTINIL
     Indication: Pulmonary arterial hypertension
     Dosage: 80 NG/KG/MIN
     Route: 058
  2. TREPROSTINIL [Suspect]
     Active Substance: TREPROSTINIL
     Dosage: 75 NG/KG/MIN
     Route: 058
     Dates: start: 20210712
  3. REMODULIN [Concomitant]
     Active Substance: TREPROSTINIL
     Indication: Product used for unknown indication
     Route: 065
  4. SILDENAFIL CITRATE [Concomitant]
     Active Substance: SILDENAFIL CITRATE
     Indication: Product used for unknown indication
     Route: 065
  5. OPSUMIT [Concomitant]
     Active Substance: MACITENTAN
     Indication: Product used for unknown indication
     Route: 065
  6. AMLODIPINE [Concomitant]
     Active Substance: AMLODIPINE BESYLATE
     Indication: Product used for unknown indication
     Route: 065

REACTIONS (4)
  - Gastrointestinal haemorrhage [Unknown]
  - Dyspnoea [Unknown]
  - Weight increased [Unknown]
  - Fatigue [Unknown]
